FAERS Safety Report 10191588 (Version 1)
Quarter: 2014Q2

REPORT INFORMATION
  Report Type: Spontaneous
  Country: FR (occurrence: None)
  Receive Date: 20140521
  Receipt Date: 20140521
  Transmission Date: 20141212
  Serious: Yes (Other)
  Sender: FDA-Public Use
  Company Number: ADR-2014-00843

PATIENT
  Age: 48 Year
  Sex: Male

DRUGS (4)
  1. BACLOFEN INTRATHECAL [Suspect]
     Dosage: 30 MG/DAY
     Dates: start: 20130815, end: 20131105
  2. STABLON (TIANEPTINE SODIUM) [Concomitant]
  3. PRAVASTATINE (PRAVASTATIN SODIUM) [Concomitant]
  4. KARDEGIC (ACETYLSALICYLATE LYSINE) [Concomitant]

REACTIONS (2)
  - Affective disorder [None]
  - Treatment noncompliance [None]
